FAERS Safety Report 6343656-9 (Version None)
Quarter: 2009Q3

REPORT INFORMATION
  Report Type: 
  Country: None (occurrence: None)
  Receive Date: 20090904
  Receipt Date: 20090904
  Transmission Date: 20100115
  Serious: Yes (Other)
  Sender: FDA-Public Use
  Company Number: None

PATIENT
  Sex: Female
  Weight: 58.9676 kg

DRUGS (2)
  1. RISPERIDONE [Suspect]
     Indication: OBSESSIVE-COMPULSIVE DISORDER
     Dosage: .25MG ONCE A DAY BY MOUTH  (ONE TIME)
     Route: 048
     Dates: start: 20090806
  2. RISPERIDONE [Suspect]
     Indication: PSYCHOTIC DISORDER
     Dosage: .25MG ONCE A DAY BY MOUTH  (ONE TIME)
     Route: 048
     Dates: start: 20090806

REACTIONS (3)
  - HYPERHIDROSIS [None]
  - NEUROLEPTIC MALIGNANT SYNDROME [None]
  - ORTHOSTATIC HYPOTENSION [None]
